FAERS Safety Report 10016775 (Version 4)
Quarter: 2014Q3

REPORT INFORMATION
  Report Type: Report from Study
  Country: AU (occurrence: AU)
  Receive Date: 20140318
  Receipt Date: 20140827
  Transmission Date: 20150326
  Serious: Yes (Hospitalization, Disabling, Other)
  Sender: FDA-Public Use
  Company Number: PHHY2014AU031396

PATIENT
  Age: 80 Year
  Sex: Female

DRUGS (23)
  1. ACLASTA [Suspect]
     Active Substance: ZOLEDRONIC ACID
     Indication: OSTEOPOROSIS
     Dosage: 5 MG
     Route: 042
     Dates: start: 20120315
  2. ATORVASTATIN [Concomitant]
     Active Substance: ATORVASTATIN
     Dosage: 80 MG, UNK (MANE)
  3. ADT VACCINE [Concomitant]
     Active Substance: DIPHTHERIA AND TETANUS TOXOIDS
     Dosage: UNK
     Dates: start: 20130209
  4. FLUARIX 2011/2012 [Concomitant]
     Active Substance: INFLUENZA A VIRUS A/CALIFORNIA/7/2009 X-181 (H1N1) ANTIGEN (FORMALDEHYDE INACTIVATED)\INFLUENZA A VIRUS A/VICTORIA/210/2009 X-187 (H3N2) ANTIGEN (FORMALDEHYDE INACTIVATED)\INFLUENZA B VIRUS B/BRISBANE/60/2008 ANTIGEN (FORMALDEHYDE INACTIVATED)\INFLUENZA VIRUS VACCINE
     Dosage: UNK
     Dates: start: 20130410
  5. ONDASETRON [Concomitant]
     Dosage: 4 MG, PRN (TDS)
  6. MOVICOL [Concomitant]
     Active Substance: POLYETHYLENE GLYCOL 3350\POTASSIUM CHLORIDE\SODIUM BICARBONATE\SODIUM CHLORIDE
     Dosage: 2 SACHETS Q4H, PRN
  7. VAXIGRIP [Concomitant]
     Active Substance: INFLUENZA VIRUS VACCINE
     Dosage: UNK
     Dates: start: 20120510
  8. DABIGATRAN ETEXILATE [Concomitant]
     Active Substance: DABIGATRAN ETEXILATE
     Indication: CEREBROVASCULAR ACCIDENT
     Dosage: 110 MG, 1 BD
     Route: 048
     Dates: start: 20140603
  9. RANITIDINE HYDROCHLORIDE. [Concomitant]
     Active Substance: RANITIDINE HYDROCHLORIDE
     Indication: GASTROOESOPHAGEAL REFLUX DISEASE
     Dosage: 150 MG, PRN 1BD
     Route: 048
     Dates: start: 20140603
  10. DIGOXIN. [Concomitant]
     Active Substance: DIGOXIN
     Dosage: 62.5 UNK, 1 MANE
     Route: 048
     Dates: start: 20140603
  11. METOCLOPRAMIDE. [Concomitant]
     Active Substance: METOCLOPRAMIDE
     Dosage: 10 MG, PRN (TDS)
  12. ATORVASTATIN CALCIUM. [Concomitant]
     Active Substance: ATORVASTATIN CALCIUM
     Indication: CEREBROVASCULAR ACCIDENT
     Dosage: 10 MG, 1 DAILY
     Route: 048
     Dates: start: 20140603
  13. VENTOLIN [Concomitant]
     Active Substance: ALBUTEROL SULFATE
     Dosage: 100 UG PER DOSE (1 TO 2 QID PRN)
     Route: 055
     Dates: start: 20140424
  14. ACLASTA [Suspect]
     Active Substance: ZOLEDRONIC ACID
     Dosage: 5 MG
     Route: 042
     Dates: start: 20130312
  15. ACLASTA [Suspect]
     Active Substance: ZOLEDRONIC ACID
     Dosage: 5 MG
     Route: 042
     Dates: start: 20140312
  16. DIGOXIN. [Concomitant]
     Active Substance: DIGOXIN
     Indication: ATRIAL FIBRILLATION
     Dosage: 62.5 UG, 1 MANE
     Route: 048
     Dates: start: 201011, end: 201306
  17. RANITIDINE [Concomitant]
     Active Substance: RANITIDINE\RANITIDINE HYDROCHLORIDE
     Indication: GASTROOESOPHAGEAL REFLUX DISEASE
     Dosage: 150 MG, BID (1 BD)
     Route: 048
  18. SALBUTAMOL [Concomitant]
     Active Substance: ALBUTEROL
     Dosage: 2 PUFFS, PRN
  19. VAXIGRIP [Concomitant]
     Active Substance: INFLUENZA VIRUS VACCINE
     Dosage: UNK
     Dates: start: 20140410
  20. ASPIRIN. [Concomitant]
     Active Substance: ASPIRIN
     Dosage: 100 MG, UNK (MANE)
  21. DABIGATRAN [Concomitant]
     Active Substance: DABIGATRAN
     Dosage: 110 MG, BID (BD)
  22. VAXIGRIP [Concomitant]
     Active Substance: INFLUENZA VIRUS VACCINE
     Dosage: UNK
     Dates: start: 20140312
  23. CHOLECALCIFEROL [Concomitant]
     Active Substance: CHOLECALCIFEROL
     Indication: OSTEOPOROTIC FRACTURE
     Dosage: 1 DF, (1000 UNITS 1 DAILY)
     Route: 048
     Dates: start: 20140603

REACTIONS (27)
  - Aphasia [Recovered/Resolved with Sequelae]
  - Hemianopia [Unknown]
  - Pulse absent [Unknown]
  - Venous pressure increased [Unknown]
  - Glomerular filtration rate decreased [Unknown]
  - Sensory loss [Unknown]
  - Motor dysfunction [Unknown]
  - Unresponsive to stimuli [Unknown]
  - Pulmonary vascular disorder [Unknown]
  - Blood creatinine increased [Unknown]
  - Muscular weakness [Unknown]
  - Carotid arteriosclerosis [Unknown]
  - Cerebrovascular accident [Recovered/Resolved with Sequelae]
  - Speech disorder [Unknown]
  - Facial paresis [Unknown]
  - VIIth nerve paralysis [Unknown]
  - Dyspnoea [Unknown]
  - Movement disorder [Unknown]
  - Activated partial thromboplastin time prolonged [Unknown]
  - Prothrombin time prolonged [Unknown]
  - Neurologic neglect syndrome [Unknown]
  - Visual acuity reduced [Unknown]
  - Inguinal hernia [Unknown]
  - Blood chloride increased [Unknown]
  - Dysarthria [Unknown]
  - Circulatory collapse [Unknown]
  - Gliosis [Unknown]

NARRATIVE: CASE EVENT DATE: 2013
